FAERS Safety Report 8408049-9 (Version None)
Quarter: 2012Q2

REPORT INFORMATION
  Report Type: 
  Country: None (occurrence: None)
  Receive Date: 20120604
  Receipt Date: 20120531
  Transmission Date: 20120825
  Serious: Yes (Hospitalization, Disabling)
  Sender: FDA-Public Use
  Company Number: GB-MERCK-1202GBR00106

PATIENT
  Age: 71 Year
  Sex: Male

DRUGS (7)
  1. CYPROTERONE ACETATE [Suspect]
     Indication: PROSTATE CANCER
     Route: 048
     Dates: start: 20110628, end: 20110801
  2. ALLOPURINOL [Concomitant]
     Route: 065
  3. ATENOLOL [Concomitant]
     Route: 065
  4. ASPIRIN [Concomitant]
     Route: 048
     Dates: start: 20090101
  5. BENDROFLUMETHIAZIDE [Concomitant]
     Indication: HYPERTENSION
     Route: 065
  6. ZOCOR [Suspect]
     Indication: HYPERCHOLESTEROLAEMIA
     Route: 048
     Dates: start: 20090730, end: 20110801
  7. LEUPROLIDE ACETATE [Concomitant]
     Route: 065

REACTIONS (5)
  - DRUG INTERACTION [None]
  - FATIGUE [None]
  - RHABDOMYOLYSIS [None]
  - LIVER FUNCTION TEST ABNORMAL [None]
  - MUSCULAR WEAKNESS [None]
